FAERS Safety Report 25381961 (Version 2)
Quarter: 2025Q3

REPORT INFORMATION
  Report Type: Report from Study
  Country: BR (occurrence: BR)
  Receive Date: 20250531
  Receipt Date: 20250804
  Transmission Date: 20251020
  Serious: Yes (Hospitalization, Other)
  Sender: AMGEN
  Company Number: BR-AMGEN-BRASL2024098855

PATIENT
  Age: 63 Year
  Sex: Male

DRUGS (1)
  1. VECTIBIX [Suspect]
     Active Substance: PANITUMUMAB
     Indication: Colorectal cancer metastatic
     Route: 040
     Dates: start: 20231018

REACTIONS (10)
  - Pain [Recovering/Resolving]
  - Gastrointestinal stoma complication [Recovering/Resolving]
  - Rectal discharge [Recovering/Resolving]
  - Thrombosis [Recovering/Resolving]
  - Mouth ulceration [Recovering/Resolving]
  - Tongue ulceration [Recovering/Resolving]
  - Eating disorder [Not Recovered/Not Resolved]
  - Acne [Recovering/Resolving]
  - Nausea [Unknown]
  - Ureteral stent removal [Unknown]

NARRATIVE: CASE EVENT DATE: 20240101
